FAERS Safety Report 24266183 (Version 1)
Quarter: 2024Q3

REPORT INFORMATION
  Report Type: Spontaneous
  Country: US (occurrence: None)
  Receive Date: 20240830
  Receipt Date: 20240830
  Transmission Date: 20241016
  Serious: No
  Sender: AXSOME THERAPEUTICS
  Company Number: US-ARIS GLOBAL-AXS202406-000834

PATIENT
  Age: 42 Year
  Sex: Female

DRUGS (1)
  1. AUVELITY [Suspect]
     Active Substance: BUPROPION HYDROCHLORIDE\DEXTROMETHORPHAN HYDROBROMIDE
     Indication: Major depression
     Route: 048
     Dates: start: 20240522, end: 20240610

REACTIONS (2)
  - Feeling abnormal [Unknown]
  - Loss of therapeutic response [Unknown]

NARRATIVE: CASE EVENT DATE: 20240101
